FAERS Safety Report 17852331 (Version 4)
Quarter: 2020Q4

REPORT INFORMATION
  Report Type: Report from Study
  Country: FR (occurrence: FR)
  Receive Date: 20200602
  Receipt Date: 20201029
  Transmission Date: 20210113
  Serious: Yes (Other)
  Sender: FDA-Public Use
  Company Number: FR-JAZZ-2020-FR-007113

PATIENT
  Age: 5 Year
  Sex: Male
  Weight: 17.6 kg

DRUGS (2)
  1. CHOLURSO [Concomitant]
     Active Substance: URSODIOL
     Indication: VENOOCCLUSIVE LIVER DISEASE
  2. DEFITELIO [Suspect]
     Active Substance: DEFIBROTIDE SODIUM
     Indication: VENOOCCLUSIVE LIVER DISEASE
     Dosage: 25.5 MILLIGRAM/KILOGRAM/DAY
     Route: 042
     Dates: start: 20190813, end: 20190826

REACTIONS (5)
  - Epstein-Barr virus infection reactivation [Recovered/Resolved]
  - Viral haemorrhagic cystitis [Recovered/Resolved]
  - Mouth haemorrhage [Recovered/Resolved]
  - Cytomegalovirus infection reactivation [Recovered/Resolved]
  - Off label use [Unknown]

NARRATIVE: CASE EVENT DATE: 20190813
